FAERS Safety Report 23128989 (Version 1)
Quarter: 2023Q4

REPORT INFORMATION
  Report Type: Spontaneous
  Country: US (occurrence: US)
  Receive Date: 20231031
  Receipt Date: 20231031
  Transmission Date: 20240110
  Serious: Yes (Other)
  Sender: FDA-Public Use
  Company Number: US-MYLANLABS-2023M1113847

PATIENT
  Sex: Male

DRUGS (2)
  1. ISOTRETINOIN [Suspect]
     Active Substance: ISOTRETINOIN
     Indication: Hidradenitis
     Dosage: RECEIVED 20 TO 40 MG DAILY, FOR 1.5 YEARS
     Route: 065
  2. ISOTRETINOIN [Suspect]
     Active Substance: ISOTRETINOIN
     Dosage: 20 MILLIGRAM, QOD (DECREASED TO 20 MG EVERY OTHER DAY)
     Route: 065

REACTIONS (6)
  - Xerosis [Unknown]
  - Condition aggravated [Unknown]
  - Lip dry [Unknown]
  - Blepharitis [Unknown]
  - Cheilitis [Unknown]
  - Off label use [Unknown]
